FAERS Safety Report 6934321-5 (Version None)
Quarter: 2010Q3

REPORT INFORMATION
  Report Type: 
  Country: None (occurrence: None)
  Receive Date: 20100820
  Receipt Date: 20100811
  Transmission Date: 20110219
  Serious: Yes (Hospitalization, Disabling)
  Sender: FDA-Public Use
  Company Number: A0864023A

PATIENT
  Age: 19 Year
  Sex: Female

DRUGS (2)
  1. ACYCLOVIR [Suspect]
     Route: 048
     Dates: start: 20100301, end: 20100601
  2. FAMVIR [Suspect]
     Route: 065

REACTIONS (3)
  - MYOCLONUS [None]
  - STREPTOCOCCUS TEST POSITIVE [None]
  - SYDENHAM'S CHOREA [None]
